FAERS Safety Report 17273199 (Version 3)
Quarter: 2020Q1

REPORT INFORMATION
  Report Type: Spontaneous
  Country: US (occurrence: US)
  Receive Date: 20200115
  Receipt Date: 20200218
  Transmission Date: 20200409
  Serious: Yes (Life-Threatening, Disabling, Other)
  Sender: FDA-Public Use
  Company Number: US-BTG-202000006

PATIENT
  Sex: Male

DRUGS (1)
  1. CROFAB [Suspect]
     Active Substance: CROTALIDAE POLYVALENT IMMUNE FAB (OVINE)
     Indication: SNAKE BITE
     Dosage: TINY TEST DOSE
     Route: 065
     Dates: start: 2001

REACTIONS (2)
  - Anaphylactic shock [Unknown]
  - Finger amputation [Unknown]

NARRATIVE: CASE EVENT DATE: 2001
